FAERS Safety Report 4554657-5 (Version None)
Quarter: 2004Q4

REPORT INFORMATION
  Report Type: 
  Country: None (occurrence: None)
  Receive Date: 20041227
  Receipt Date: 20040913
  Transmission Date: 20050328
  Serious: No
  Sender: FDA-Public Use
  Company Number: US091365

PATIENT
  Age: 44 Year
  Sex: Male
  Weight: 100 kg

DRUGS (7)
  1. SENSIPAR [Suspect]
     Indication: HYPERPARATHYROIDISM SECONDARY
     Dosage: 30 MG, 1 IN 1 DAYS, PO
     Route: 048
     Dates: start: 20040903
  2. VENOFER [Concomitant]
  3. PARICALCITOL [Concomitant]
  4. DEXTRIFERRON [Concomitant]
  5. ARANESP [Concomitant]
  6. FAMOTIDINE [Concomitant]
  7. LABETALOL HYDROCHLORIDE [Concomitant]

REACTIONS (2)
  - NAUSEA [None]
  - VOMITING [None]
